FAERS Safety Report 8340431-0 (Version None)
Quarter: 2012Q2

REPORT INFORMATION
  Report Type: 
  Country: None (occurrence: None)
  Receive Date: 20120507
  Receipt Date: 20120507
  Transmission Date: 20120825
  Serious: Yes (Other)
  Sender: FDA-Public Use
  Company Number: None

PATIENT
  Age: 25 Year
  Sex: Female
  Weight: 46.266 kg

DRUGS (2)
  1. CLINDAMYCIN PHOSPHATE [Suspect]
     Indication: DRY SKIN
     Dosage: |DOSAGETEXT: 1%||STRENGTH: 1%||FREQ: MORNING||ROUTE: TOPICAL|
     Route: 061
     Dates: start: 20110327, end: 20120613
  2. CLINDAMYCIN PHOSPHATE [Suspect]
     Indication: ACNE
     Dosage: |DOSAGETEXT: 1%||STRENGTH: 1%||FREQ: MORNING||ROUTE: TOPICAL|
     Route: 061
     Dates: start: 20110327, end: 20120613

REACTIONS (6)
  - PAIN [None]
  - BURNS THIRD DEGREE [None]
  - APPLICATION SITE BURN [None]
  - APPLICATION SITE SCAR [None]
  - DRUG HYPERSENSITIVITY [None]
  - DEPRESSION [None]
